FAERS Safety Report 9430339 (Version 2)
Quarter: 2013Q3

REPORT INFORMATION
  Report Type: Spontaneous
  Country: GB (occurrence: None)
  Receive Date: 20130726
  Receipt Date: 20130729
  Transmission Date: 20140515
  Serious: Yes (Hospitalization)
  Sender: FDA-Public Use
  Company Number: AUR-APL-2013-06130

PATIENT
  Age: 86 Year
  Sex: Female

DRUGS (12)
  1. PERINDOPRIL [Suspect]
     Indication: HYPERTENSION
     Dosage: 8 MG (8 MG, 1 IN 1 D), ORAL
     Route: 048
     Dates: end: 20130622
  2. DOXAZOSIN (DOXAZOSIN) [Concomitant]
  3. FERROUS FUMARATE (FERRROUS FUMARATE) [Concomitant]
  4. FOLIC ACID (FOLIC ACID) [Concomitant]
  5. ISOSORBIDE (ISOSORBIDE) [Concomitant]
  6. LANSOPRAZOLE (LANSOPRAZOLE) [Concomitant]
  7. PIROXICAM (PIROXICAM) [Concomitant]
  8. RALOXIFENE (RALOXIFENE) [Concomitant]
  9. TRAMADOL (TRAMADOL) [Concomitant]
  10. TRIMETHOPRIM (TRIMETHOPRIM) [Concomitant]
  11. ZAPAIN (PANADEINE CO) [Concomitant]
  12. ZOLPIDEM (ZOLPIDEM) [Concomitant]

REACTIONS (4)
  - Renal failure acute [None]
  - Sepsis [None]
  - Vomiting [None]
  - Urinary tract infection [None]
